FAERS Safety Report 4795192-9 (Version None)
Quarter: 2005Q4

REPORT INFORMATION
  Report Type: 
  Country: None (occurrence: None)
  Receive Date: 20051006
  Receipt Date: 20050926
  Transmission Date: 20060501
  Serious: Yes (Other)
  Sender: FDA-Public Use
  Company Number: 2005JP001904

PATIENT

DRUGS (1)
  1. PROGRAF [Suspect]
     Indication: CORONARY ARTERIAL STENT INSERTION

REACTIONS (4)
  - CORONARY ARTERY RESTENOSIS [None]
  - MEDICAL DEVICE COMPLICATION [None]
  - REOCCLUSION [None]
  - STENT OCCLUSION [None]
